FAERS Safety Report 9118613 (Version 1)
Quarter: 2013Q1

REPORT INFORMATION
  Report Type: Spontaneous
  Country: US (occurrence: None)
  Receive Date: 20130221
  Receipt Date: 20130221
  Transmission Date: 20140127
  Serious: Yes (Other)
  Sender: FDA-Public Use
  Company Number: None

PATIENT
  Age: 65 Year
  Sex: Female

DRUGS (1)
  1. COPAXONE 20MG TEVA [Suspect]
     Indication: MULTIPLE SCLEROSIS
     Dates: start: 20100603, end: 20130219

REACTIONS (1)
  - Anaemia [None]
